FAERS Safety Report 11403156 (Version 1)
Quarter: 2015Q3

REPORT INFORMATION
  Report Type: Spontaneous
  Country: US (occurrence: US)
  Receive Date: 20150821
  Receipt Date: 20150821
  Transmission Date: 20151125
  Serious: No
  Sender: FDA-Public Use
  Company Number: US-ROCHE-1270681

PATIENT
  Sex: Female

DRUGS (5)
  1. PEGASYS [Suspect]
     Active Substance: PEGINTERFERON ALFA-2A
     Indication: CHRONIC HEPATITIS C
     Dosage: PREFILLED SYRINGES
     Route: 065
     Dates: start: 20130730
  2. COPEGUS [Suspect]
     Active Substance: RIBAVIRIN
     Indication: CHRONIC HEPATITIS C
     Dosage: QD
     Route: 065
     Dates: start: 20130730
  3. COPEGUS [Suspect]
     Active Substance: RIBAVIRIN
     Route: 065
  4. PROCRIT [Concomitant]
     Active Substance: ERYTHROPOIETIN
  5. TELAPREVIR [Suspect]
     Active Substance: TELAPREVIR
     Indication: CHRONIC HEPATITIS C
     Route: 065
     Dates: start: 20130730

REACTIONS (9)
  - Red blood cell count decreased [Unknown]
  - Fatigue [Unknown]
  - Sinus disorder [Unknown]
  - Epistaxis [Unknown]
  - Mucosal dryness [Unknown]
  - Decreased appetite [Unknown]
  - Injection site bruising [Not Recovered/Not Resolved]
  - Haemoglobin decreased [Unknown]
  - Rash [Unknown]
